FAERS Safety Report 14739864 (Version 2)
Quarter: 2018Q4

REPORT INFORMATION
  Report Type: Spontaneous
  Country: FR (occurrence: FR)
  Receive Date: 20180410
  Receipt Date: 20181026
  Transmission Date: 20190204
  Serious: Yes (Other)
  Sender: FDA-Public Use
  Company Number: FR-MERCK KGAA-2045438

PATIENT
  Age: 54 Year
  Sex: Female

DRUGS (1)
  1. EUTHYROX [Suspect]
     Active Substance: LEVOTHYROXINE SODIUM
     Indication: PRODUCT USED FOR UNKNOWN INDICATION

REACTIONS (23)
  - Arrhythmia [Not Recovered/Not Resolved]
  - Anxiety [None]
  - Haemorrhoids [None]
  - Constipation [None]
  - Intellectual disability [None]
  - Alopecia [None]
  - Lethargy [None]
  - Anal fissure [None]
  - Diarrhoea [None]
  - Major depression [None]
  - Fatigue [None]
  - Headache [Not Recovered/Not Resolved]
  - Tachycardia [Not Recovered/Not Resolved]
  - Self esteem decreased [None]
  - Metabolic disorder [Not Recovered/Not Resolved]
  - Euphoric mood [None]
  - Panic reaction [None]
  - Hyperthyroidism [Not Recovered/Not Resolved]
  - Aggression [None]
  - Mood swings [None]
  - Temperature intolerance [None]
  - General physical health deterioration [None]
  - Blood 25-hydroxycholecalciferol decreased [None]

NARRATIVE: CASE EVENT DATE: 20170902
